FAERS Safety Report 6561972-2 (Version None)
Quarter: 2010Q1

REPORT INFORMATION
  Report Type: 
  Country: None (occurrence: None)
  Receive Date: 20100130
  Receipt Date: 20091217
  Transmission Date: 20100710
  Serious: No
  Sender: FDA-Public Use
  Company Number: US-ABBOTT-09P-163-0593474-00

PATIENT
  Sex: Male
  Weight: 105.78 kg

DRUGS (9)
  1. HUMIRA [Suspect]
     Indication: RHEUMATOID ARTHRITIS
     Route: 058
     Dates: end: 20090801
  2. HUMIRA [Suspect]
     Indication: PSORIATIC ARTHROPATHY
     Route: 058
  3. CELEBREX [Concomitant]
     Indication: PAIN
     Dosage: UNKNOWN
  4. NEXIUM [Concomitant]
     Indication: GASTROOESOPHAGEAL REFLUX DISEASE
     Dosage: UNKNOWN
     Route: 048
  5. ACIPHEX [Concomitant]
     Indication: GASTROOESOPHAGEAL REFLUX DISEASE
     Dosage: ONLY WHEN OUT OF NEXIUM
  6. VICODIN [Concomitant]
     Indication: PAIN
  7. RANITIDINE [Concomitant]
     Indication: GASTROOESOPHAGEAL REFLUX DISEASE
  8. VITAMINS [Concomitant]
     Indication: VITAMIN SUPPLEMENTATION
  9. TRIAMAMTERINE [Concomitant]
     Indication: HYPERTENSION

REACTIONS (7)
  - ARTHRALGIA [None]
  - BLOOD URIC ACID INCREASED [None]
  - HEART RATE IRREGULAR [None]
  - INFLAMMATION [None]
  - INJECTION SITE PAIN [None]
  - PAIN IN EXTREMITY [None]
  - PALPITATIONS [None]
